FAERS Safety Report 8060918-8 (Version None)
Quarter: 2012Q1

REPORT INFORMATION
  Report Type: 
  Country: None (occurrence: None)
  Receive Date: 20120120
  Receipt Date: 20110309
  Transmission Date: 20120608
  Serious: No
  Sender: FDA-Public Use
  Company Number: US-ALLERGAN-1103329US

PATIENT
  Age: 82 Year
  Sex: Female

DRUGS (2)
  1. METROGEL [Concomitant]
     Indication: ROSACEA
     Dosage: UNK
     Route: 061
     Dates: start: 20110101
  2. RESTASIS [Suspect]
     Indication: DRY EYE
     Dosage: 2 GTT, BID
     Route: 047
     Dates: start: 20110101, end: 20110202

REACTIONS (4)
  - EYE PAIN [None]
  - ALOPECIA [None]
  - EYE IRRITATION [None]
  - FOREIGN BODY SENSATION IN EYES [None]
